FAERS Safety Report 21582242 (Version 2)
Quarter: 2023Q2

REPORT INFORMATION
  Report Type: Other
  Country: US (occurrence: US)
  Receive Date: 20221111
  Receipt Date: 20230523
  Transmission Date: 20230721
  Serious: No
  Sender: FDA-Public Use
  Company Number: US-GLENMARK PHARMACEUTICALS-2022GMK075275

PATIENT

DRUGS (2)
  1. TRANDOLAPRIL\VERAPAMIL HYDROCHLORIDE [Suspect]
     Active Substance: TRANDOLAPRIL\VERAPAMIL HYDROCHLORIDE
     Indication: Migraine
     Dosage: UNK (EFFECTIVE BATCH)
     Route: 048
     Dates: start: 2021
  2. TRANDOLAPRIL\VERAPAMIL HYDROCHLORIDE [Suspect]
     Active Substance: TRANDOLAPRIL\VERAPAMIL HYDROCHLORIDE
     Dosage: UNK (MOST RECENT INEFFECTIVE BATCH)
     Route: 048
     Dates: start: 20220804

REACTIONS (5)
  - Scintillating scotoma [Unknown]
  - Migraine [Unknown]
  - Product use in unapproved indication [Unknown]
  - Product quality issue [Unknown]
  - Therapeutic product effect incomplete [Unknown]

NARRATIVE: CASE EVENT DATE: 20210101
